FAERS Safety Report 23050435 (Version 6)
Quarter: 2024Q3

REPORT INFORMATION
  Report Type: Spontaneous
  Country: US (occurrence: US)
  Receive Date: 20231010
  Receipt Date: 20240829
  Transmission Date: 20241017
  Serious: Yes (Other)
  Sender: PFIZER
  Company Number: US-PFIZER INC-PV202300165685

PATIENT
  Age: 76 Year
  Sex: Female

DRUGS (1)
  1. XELJANZ XR [Suspect]
     Active Substance: TOFACITINIB CITRATE
     Dosage: 11 MG
     Dates: end: 202403

REACTIONS (11)
  - Eye disorder [Not Recovered/Not Resolved]
  - Musculoskeletal stiffness [Unknown]
  - Drug hypersensitivity [Unknown]
  - Rash [Unknown]
  - Pain [Unknown]
  - Herpes zoster [Unknown]
  - Asthenia [Not Recovered/Not Resolved]
  - Gait disturbance [Not Recovered/Not Resolved]
  - Arthralgia [Recovering/Resolving]
  - Swelling [Recovering/Resolving]
  - Energy increased [Unknown]

NARRATIVE: CASE EVENT DATE: 20240301
